FAERS Safety Report 12642974 (Version 2)
Quarter: 2017Q3

REPORT INFORMATION
  Report Type: Spontaneous
  Country: US (occurrence: US)
  Receive Date: 20160811
  Receipt Date: 20170811
  Transmission Date: 20171127
  Serious: No
  Sender: FDA-Public Use
  Company Number: US-ASTRAZENECA-2016SE83117

PATIENT
  Sex: Female
  Weight: 72.6 kg

DRUGS (2)
  1. INSULIN [Concomitant]
     Active Substance: INSULIN NOS
  2. BYDUREON [Suspect]
     Active Substance: EXENATIDE
     Indication: TYPE 2 DIABETES MELLITUS
     Dosage: ONCE A WEEK
     Route: 065
     Dates: start: 201604

REACTIONS (5)
  - Injection site nodule [Unknown]
  - Nodule [Unknown]
  - Weight decreased [Unknown]
  - Cyst [Unknown]
  - Intentional product use issue [Unknown]
